FAERS Safety Report 14975433 (Version 2)
Quarter: 2018Q4

REPORT INFORMATION
  Report Type: Report from Study
  Country: US (occurrence: US)
  Receive Date: 20180605
  Receipt Date: 20181217
  Transmission Date: 20190204
  Serious: Yes (Other)
  Sender: FDA-Public Use
  Company Number: US-ARIAD-2017US007586

PATIENT
  Sex: Female

DRUGS (2)
  1. PONATINIB [Suspect]
     Active Substance: PONATINIB
     Dosage: 45 MG, QD
     Route: 048
     Dates: start: 20170811
  2. PONATINIB [Suspect]
     Active Substance: PONATINIB
     Indication: BRAIN NEOPLASM MALIGNANT
     Dosage: 15 MG, QD
     Route: 048
     Dates: start: 201701

REACTIONS (7)
  - Rash pruritic [Not Recovered/Not Resolved]
  - Dry skin [Unknown]
  - Off label use [Unknown]
  - Ocular hyperaemia [Unknown]
  - Fatigue [Unknown]
  - Tumour haemorrhage [Unknown]
  - Rash erythematous [Recovered/Resolved]
